FAERS Safety Report 11187704 (Version 2)
Quarter: 2015Q3

REPORT INFORMATION
  Report Type: Spontaneous
  Country: US (occurrence: US)
  Receive Date: 20150615
  Receipt Date: 20150714
  Transmission Date: 20151125
  Serious: No
  Sender: FDA-Public Use
  Company Number: US-JNJFOC-20150507441

PATIENT
  Sex: Female

DRUGS (1)
  1. XARELTO [Suspect]
     Active Substance: RIVAROXABAN
     Indication: PULMONARY EMBOLISM
     Route: 048
     Dates: start: 201412

REACTIONS (4)
  - Musculoskeletal chest pain [Unknown]
  - Anxiety [Not Recovered/Not Resolved]
  - Chest discomfort [Unknown]
  - Musculoskeletal pain [Unknown]
